FAERS Safety Report 15884018 (Version 1)
Quarter: 2019Q1

REPORT INFORMATION
  Report Type: Spontaneous
  Country: AU (occurrence: AU)
  Receive Date: 20190129
  Receipt Date: 20190129
  Transmission Date: 20190417
  Serious: Yes (Hospitalization)
  Sender: FDA-Public Use
  Company Number: AU-NORTHSTAR HEALTHCARE HOLDINGS-AU-2019NSR000009

PATIENT
  Age: 44 Year
  Sex: Female

DRUGS (1)
  1. BACLOFEN. [Suspect]
     Active Substance: BACLOFEN
     Indication: ALCOHOL USE DISORDER
     Dosage: 800 MG, UNK

REACTIONS (4)
  - Intentional overdose [Unknown]
  - Seizure [Unknown]
  - Coma scale abnormal [Unknown]
  - Toxicity to various agents [Unknown]
